FAERS Safety Report 5500539-1 (Version None)
Quarter: 2007Q4

REPORT INFORMATION
  Report Type: 
  Country: None (occurrence: None)
  Receive Date: 20071018
  Receipt Date: 20061103
  Transmission Date: 20080405
  Serious: Yes (Other)
  Sender: FDA-Public Use
  Company Number: 2006136453

PATIENT
  Age: 70 Year
  Sex: Male
  Weight: 51.2565 kg

DRUGS (7)
  1. NEURONTIN [Suspect]
     Indication: NEUROPATHY
     Dosage: (500 MG)
     Dates: start: 20020101
  2. VALSARTAN [Concomitant]
  3. PROTONIX [Concomitant]
  4. TAMSULOSIN HCL [Concomitant]
  5. BUSPAR [Concomitant]
  6. TRAZODONE HCL [Concomitant]
  7. LEXAPRO [Concomitant]

REACTIONS (3)
  - BURSITIS [None]
  - HYPOAESTHESIA [None]
  - MUSCULAR WEAKNESS [None]
